FAERS Safety Report 11189699 (Version 9)
Quarter: 2017Q1

REPORT INFORMATION
  Report Type: Report from Study
  Country: AT (occurrence: AT)
  Receive Date: 20150615
  Receipt Date: 20170301
  Transmission Date: 20170428
  Serious: Yes (Death, Hospitalization, Other)
  Sender: FDA-Public Use
  Company Number: AT-INCYTE CORPORATION-2015IN002020

PATIENT
  Age: 63 Year
  Sex: Male
  Weight: 74.5 kg

DRUGS (34)
  1. FURON [Concomitant]
     Active Substance: FUROSEMIDE
     Dosage: 2 DF, QD (IN THE MORNING)
     Route: 065
  2. CONCOR [Concomitant]
     Active Substance: BISOPROLOL FUMARATE
     Dosage: 1 DF, QD (IN THE MORNING)
  3. EUTHYROX [Concomitant]
     Active Substance: LEVOTHYROXINE SODIUM
     Dosage: 1 DF, QD (IN THE MORNING)
  4. FURON [Concomitant]
     Active Substance: FUROSEMIDE
     Indication: PRODUCT USED FOR UNKNOWN INDICATION
     Dosage: 40 MG
  5. CONCOR [Concomitant]
     Active Substance: BISOPROLOL FUMARATE
     Dosage: 1 DF, QD (IN THE MORNING)
  6. EXFORGE [Concomitant]
     Active Substance: AMLODIPINE BESYLATE\VALSARTAN
     Dosage: 1 DF, QD (IN THE MORNING)
  7. JAKAVI [Suspect]
     Active Substance: RUXOLITINIB
     Indication: MYELOFIBROSIS
     Dosage: UNK
     Route: 048
     Dates: start: 20130723
  8. EXFORGE [Concomitant]
     Active Substance: AMLODIPINE BESYLATE\VALSARTAN
     Dosage: 1 DF, QD (IN THE MORNING)
  9. INTERFERON ALFA NOS [Concomitant]
     Active Substance: INTERFERON ALFA-2A OR INTERFERON ALFA-2B
     Indication: PRODUCT USED FOR UNKNOWN INDICATION
     Route: 065
     Dates: start: 1990
  10. CONCOR [Concomitant]
     Active Substance: BISOPROLOL FUMARATE
     Dosage: 1 DF, QD (IN THE MORNING)
  11. EXFORGE [Concomitant]
     Active Substance: AMLODIPINE BESYLATE\VALSARTAN
     Indication: PRODUCT USED FOR UNKNOWN INDICATION
     Dosage: 5 MG, UNK
     Route: 065
  12. EXFORGE [Concomitant]
     Active Substance: AMLODIPINE BESYLATE\VALSARTAN
     Dosage: 1 DF, QD (IN THE MORNING)
  13. JAKAVI [Suspect]
     Active Substance: RUXOLITINIB
     Dosage: 10 MG, BID
     Route: 048
     Dates: start: 20140828
  14. RESONIUM [Concomitant]
     Active Substance: SODIUM POLYSTYRENE SULFONATE
     Indication: HYPERKALAEMIA
     Dosage: UNK, QOD
     Route: 065
     Dates: start: 20140526
  15. FURON [Concomitant]
     Active Substance: FUROSEMIDE
     Dosage: 2 DF, QD (IN THE MORNING)
     Route: 065
  16. FURON [Concomitant]
     Active Substance: FUROSEMIDE
     Dosage: 2 DF, QD (IN THE MORNING)
     Route: 065
  17. AQUAPHORIL [Concomitant]
     Dosage: 1 DF, QD (IN THE MORNING)
  18. AQUAPHORIL [Concomitant]
     Dosage: 1 DF, QD (IN THE MORNING)
  19. EUTHYROX [Concomitant]
     Active Substance: LEVOTHYROXINE SODIUM
     Dosage: 1 DF, QD (IN THE MORNING)
  20. DREISACARB [Concomitant]
     Active Substance: CALCIUM CARBONATE
     Indication: HYPERCALCAEMIA
     Dosage: 1000 MG, BID
     Route: 065
     Dates: start: 20120824
  21. LITALIR [Concomitant]
     Active Substance: HYDROXYUREA
     Indication: PRODUCT USED FOR UNKNOWN INDICATION
     Dosage: UNK
     Route: 065
     Dates: start: 1995
  22. NEORECORMON [Concomitant]
     Active Substance: ERYTHROPOIETIN
     Indication: PRODUCT USED FOR UNKNOWN INDICATION
     Route: 065
     Dates: start: 2010
  23. FURON [Concomitant]
     Active Substance: FUROSEMIDE
     Dosage: 2 DF, QD (IN THE MORNING)
     Route: 065
  24. EUTHYROX [Concomitant]
     Active Substance: LEVOTHYROXINE SODIUM
     Dosage: 1 DF, QD (IN THE MORNING)
  25. EUTHYROX [Concomitant]
     Active Substance: LEVOTHYROXINE SODIUM
     Dosage: 1 DF, QD (IN THE MORNING)
  26. OLEOVIT-D3 [Concomitant]
     Indication: OSTEOPOROSIS
     Dosage: 30 PH ONCE A WEEK
     Route: 065
     Dates: start: 20130225
  27. AQUAPHORIL [Concomitant]
     Indication: PRODUCT USED FOR UNKNOWN INDICATION
     Dosage: 40 MG, UNK
     Route: 065
  28. AQUAPHORIL [Concomitant]
     Dosage: 1 DF, QD (IN THE MORNING)
  29. EUTHYROX [Concomitant]
     Active Substance: LEVOTHYROXINE SODIUM
     Indication: PRODUCT USED FOR UNKNOWN INDICATION
     Dosage: 125 ?G, UNK
     Route: 065
  30. JAKAVI [Suspect]
     Active Substance: RUXOLITINIB
     Dosage: 15 MG, BID (30 MG QD)
     Route: 048
     Dates: start: 20141125
  31. AQUAPHORIL [Concomitant]
     Dosage: 1 DF, QD (IN THE MORNING)
  32. CONCOR [Concomitant]
     Active Substance: BISOPROLOL FUMARATE
     Indication: PRODUCT USED FOR UNKNOWN INDICATION
     Dosage: 5 MG, UNK
     Route: 065
  33. CONCOR [Concomitant]
     Active Substance: BISOPROLOL FUMARATE
     Dosage: 1 DF, QD (IN THE MORNING)
  34. EXFORGE [Concomitant]
     Active Substance: AMLODIPINE BESYLATE\VALSARTAN
     Dosage: 1 DF, QD (IN THE MORNING)

REACTIONS (18)
  - Influenza like illness [Unknown]
  - Pancytopenia [Fatal]
  - Cardiac murmur [Unknown]
  - Oedema peripheral [Not Recovered/Not Resolved]
  - Brain natriuretic peptide increased [Unknown]
  - Stress [Unknown]
  - Nocturia [Unknown]
  - Blood alkaline phosphatase increased [Unknown]
  - Umbilical hernia [Unknown]
  - Myelofibrosis [Fatal]
  - Ascites [Fatal]
  - Muscle spasms [Recovered/Resolved]
  - Hypertension [Unknown]
  - Cough [Unknown]
  - Ascites [Recovered/Resolved]
  - Hypothyroidism [Unknown]
  - Blood lactate dehydrogenase increased [Unknown]
  - Pleural effusion [Not Recovered/Not Resolved]

NARRATIVE: CASE EVENT DATE: 20131219
